FAERS Safety Report 17508586 (Version 2)
Quarter: 2021Q1

REPORT INFORMATION
  Report Type: Report from Study
  Country: CA (occurrence: CA)
  Receive Date: 20200306
  Receipt Date: 20210113
  Transmission Date: 20210419
  Serious: Yes (Hospitalization)
  Sender: FDA-Public Use
  Company Number: CA-PUMA BIOTECHNOLOGY, LTD.-2020CA001342

PATIENT

DRUGS (1)
  1. NERLYNX [Suspect]
     Active Substance: NERATINIB
     Indication: BRAIN CANCER METASTATIC
     Dosage: 240 MG, DAILY
     Route: 048
     Dates: end: 20200226

REACTIONS (2)
  - General physical health deterioration [Unknown]
  - Intentional product use issue [Unknown]
